FAERS Safety Report 18996551 (Version 1)
Quarter: 2021Q1

REPORT INFORMATION
  Report Type: Report from Study
  Country: IN (occurrence: IN)
  Receive Date: 20210311
  Receipt Date: 20210311
  Transmission Date: 20210420
  Serious: Yes (Hospitalization)
  Sender: FDA-Public Use
  Company Number: NVSC2021IN049956

PATIENT
  Age: 1 Year
  Sex: Female
  Weight: 8.97 kg

DRUGS (1)
  1. ONASEMNOGENE ABEPARVOVEC [Suspect]
     Active Substance: ONASEMNOGENE ABEPARVOVEC
     Indication: SPINAL MUSCULAR ATROPHY
     Dosage: 49.5 ML, ONCE/SINGLE
     Route: 042
     Dates: start: 20210223

REACTIONS (3)
  - Hypophagia [Not Recovered/Not Resolved]
  - Hepatic enzyme increased [Not Recovered/Not Resolved]
  - Pyrexia [Recovered/Resolved]

NARRATIVE: CASE EVENT DATE: 20210226
